FAERS Safety Report 8417545-X (Version None)
Quarter: 2012Q2

REPORT INFORMATION
  Report Type: 
  Country: None (occurrence: None)
  Receive Date: 20120606
  Receipt Date: 20120522
  Transmission Date: 20120825
  Serious: No
  Sender: FDA-Public Use
  Company Number: US-ASTRAZENECA-2012SE27197

PATIENT
  Age: 62 Year
  Sex: Female
  Weight: 90.7 kg

DRUGS (4)
  1. SEROQUEL XR [Suspect]
     Indication: BIPOLAR DISORDER
     Route: 048
     Dates: start: 20110601, end: 20120317
  2. FLUOXETINE HYDROCHLORIDE [Concomitant]
  3. SEROQUEL XR [Suspect]
     Route: 048
     Dates: start: 20120417
  4. RISPERIDONE [Concomitant]
     Dates: start: 20120317

REACTIONS (6)
  - ABASIA [None]
  - DEPRESSION [None]
  - HUNGER [None]
  - FEAR [None]
  - INTENTIONAL DRUG MISUSE [None]
  - TOOTH ABSCESS [None]
